FAERS Safety Report 26102316 (Version 1)
Quarter: 2025Q4

REPORT INFORMATION
  Report Type: Spontaneous
  Country: EU (occurrence: EU)
  Receive Date: 20251128
  Receipt Date: 20251128
  Transmission Date: 20260118
  Serious: Yes (Other)
  Sender: ALEXION PHARMACEUTICALS
  Company Number: EU-AstraZeneca-CH-00990539A

PATIENT
  Age: 42 Year
  Sex: Male

DRUGS (1)
  1. SOLIRIS [Suspect]
     Active Substance: ECULIZUMAB
     Indication: Atypical haemolytic uraemic syndrome
     Dosage: UNK

REACTIONS (9)
  - Mitral valve incompetence [Unknown]
  - Cardiac murmur [Unknown]
  - Blood creatinine abnormal [Unknown]
  - Haemoglobin abnormal [Unknown]
  - Blood lactate dehydrogenase abnormal [Unknown]
  - Haptoglobin abnormal [Unknown]
  - Diarrhoea [Unknown]
  - Muscle injury [Unknown]
  - Papillary muscle disorder [Unknown]
